FAERS Safety Report 8248926-5 (Version None)
Quarter: 2012Q2

REPORT INFORMATION
  Report Type: 
  Country: None (occurrence: None)
  Receive Date: 20120402
  Receipt Date: 20120319
  Transmission Date: 20120825
  Serious: Yes (Life-Threatening, Hospitalization, Other)
  Sender: FDA-Public Use
  Company Number: IL-BRISTOL-MYERS SQUIBB COMPANY-16410417

PATIENT
  Age: 65 Year
  Sex: Female

DRUGS (1)
  1. METFORMIN HCL [Suspect]
     Indication: TYPE 2 DIABETES MELLITUS
     Route: 048

REACTIONS (7)
  - ANURIA [None]
  - VOMITING [None]
  - HYPOTENSION [None]
  - DIARRHOEA [None]
  - NAUSEA [None]
  - PNEUMONIA [None]
  - LACTIC ACIDOSIS [None]
